FAERS Safety Report 15719611 (Version 1)
Quarter: 2018Q4

REPORT INFORMATION
  Report Type: Spontaneous
  Country: US (occurrence: US)
  Receive Date: 20181213
  Receipt Date: 20181213
  Transmission Date: 20190205
  Serious: No
  Sender: FDA-Public Use
  Company Number: US-SUNOVION-2018SUN004730

PATIENT
  Age: 67 Year
  Sex: Male

DRUGS (2)
  1. LATUDA [Suspect]
     Active Substance: LURASIDONE HYDROCHLORIDE
     Dosage: UNK
     Route: 048
  2. INGREZZA [Suspect]
     Active Substance: VALBENAZINE
     Dosage: UNK
     Route: 065

REACTIONS (1)
  - Tardive dyskinesia [Unknown]
